FAERS Safety Report 18897857 (Version 1)
Quarter: 2021Q1

REPORT INFORMATION
  Report Type: Spontaneous
  Country: US (occurrence: US)
  Receive Date: 20210212
  Receipt Date: 20210212
  Transmission Date: 20210420
  Serious: Yes (Hospitalization, Other)
  Sender: FDA-Public Use
  Company Number: None

PATIENT
  Age: 48 Year
  Sex: Male
  Weight: 139.5 kg

DRUGS (8)
  1. SOLGAR 5000 IU VITAMIN D3 [Concomitant]
  2. SOLGAR MEN^S MULTI?VITAMIN?IRON FREE [Concomitant]
  3. HYDROXYZINE [Concomitant]
     Active Substance: HYDROXYZINE HYDROCHLORIDE
  4. OMEPRAZOLE DELAYED RELEASE TABLETS 20MG ? 42 TABLETS [Suspect]
     Active Substance: OMEPRAZOLE
     Indication: GASTROOESOPHAGEAL REFLUX DISEASE
     Dosage: ?          QUANTITY:2 TABLET(S);?
     Route: 048
  5. CHOLESTYRAMINE. [Concomitant]
     Active Substance: CHOLESTYRAMINE
  6. METOPROLOL TARTRATE. [Concomitant]
     Active Substance: METOPROLOL TARTRATE
  7. LOPERAMIDE HYDROCHLORIDE TABLETS 2MG ? 192 CAPLETS [Suspect]
     Active Substance: LOPERAMIDE HYDROCHLORIDE
     Indication: IRRITABLE BOWEL SYNDROME
     Dosage: ?          QUANTITY:2 TABLET(S);?
     Route: 048
  8. SOLGAR 1000 MG ESTER?C [Concomitant]

REACTIONS (6)
  - Anxiety disorder [None]
  - Alcohol interaction [None]
  - Psychotic disorder [None]
  - Extra dose administered [None]
  - Insomnia [None]
  - Feeling abnormal [None]

NARRATIVE: CASE EVENT DATE: 20201127
